FAERS Safety Report 5607242-8 (Version None)
Quarter: 2008Q1

REPORT INFORMATION
  Report Type: 
  Country: None (occurrence: None)
  Receive Date: 20080111
  Receipt Date: 20070108
  Transmission Date: 20080703
  Serious: Yes (Other)
  Sender: FDA-Public Use
  Company Number: HQWYE181707MAR06

PATIENT
  Age: 52 Year
  Sex: Female
  Weight: 131.66 kg

DRUGS (3)
  1. PREMPRO [Suspect]
  2. PREMARIN [Suspect]
  3. PREMARIN [Suspect]

REACTIONS (1)
  - BREAST CANCER IN SITU [None]
